FAERS Safety Report 10306289 (Version 3)
Quarter: 2014Q3

REPORT INFORMATION
  Report Type: Spontaneous
  Country: IT (occurrence: None)
  Receive Date: 20140711
  Receipt Date: 20140801
  Transmission Date: 20150326
  Serious: Yes (Other)
  Sender: FDA-Public Use
  Company Number: 2014-IT-008032

PATIENT
  Age: 20 Year
  Sex: Male

DRUGS (4)
  1. PREDNISONE. [Concomitant]
     Active Substance: PREDNISONE
  2. DAUNORUBICIN (DAUNORUBICIN) [Suspect]
     Active Substance: DAUNORUBICIN
  3. ERWINASE [Suspect]
     Active Substance: ASPARAGINASE ERWINIA CHRYSANTHEMI
     Indication: ACUTE LEUKAEMIA
     Dosage: 10000 IU/M2, D12, D15, D18, D21, D24, D27, D30, D33, INTRAVENOUS
     Route: 042
  4. VINCRISTINE [Concomitant]
     Active Substance: VINCRISTINE

REACTIONS (9)
  - Thrombocytopenia [None]
  - Pancreatic disorder [None]
  - Lipase increased [None]
  - Toxicity to various agents [None]
  - Amylase increased [None]
  - Thrombosis [None]
  - Myelodysplastic syndrome [None]
  - Pulmonary embolism [None]
  - Hepatotoxicity [None]

NARRATIVE: CASE EVENT DATE: 201402
